FAERS Safety Report 5892602-0 (Version None)
Quarter: 2008Q3

REPORT INFORMATION
  Report Type: 
  Country: None (occurrence: None)
  Receive Date: 20080923
  Receipt Date: 20080912
  Transmission Date: 20090109
  Serious: Yes (Other)
  Sender: FDA-Public Use
  Company Number: US-ROCHE-460032

PATIENT
  Sex: Female
  Weight: 90.7 kg

DRUGS (7)
  1. CELLCEPT [Suspect]
     Indication: INFLAMMATION
     Route: 048
     Dates: start: 20051001, end: 20060320
  2. PREDNISONE TAB [Concomitant]
     Indication: WEST NILE VIRAL INFECTION
     Dosage: VARYING DOSES USED TO TREAT SYMPTOMS OF WEST NILE VIRUS WHICH WAS DIAGNOSED IN SEPT 2003. DOSAGE IN+
  3. FUROSEMIDE [Concomitant]
     Indication: HYPERTENSION
  4. DIOVAN [Concomitant]
     Indication: HYPERTENSION
  5. HYDROCHLOROTHIAZIDE [Concomitant]
     Indication: HYPERTENSION
  6. METOPROLOL TARTRATE [Concomitant]
     Indication: HYPERTENSION
  7. CYMBALTA [Concomitant]
     Indication: DEPRESSION

REACTIONS (3)
  - CYSTITIS [None]
  - DIARRHOEA [None]
  - IGA NEPHROPATHY [None]
